FAERS Safety Report 22166578 (Version 1)
Quarter: 2023Q2

REPORT INFORMATION
  Report Type: Spontaneous
  Country: US (occurrence: US)
  Receive Date: 20230403
  Receipt Date: 20230403
  Transmission Date: 20230722
  Serious: No
  Sender: FDA-Public Use
  Company Number: US-MAYNE PHARMA-2023MYN000310

PATIENT

DRUGS (1)
  1. LIOTHYRONINE [Suspect]
     Active Substance: LIOTHYRONINE
     Indication: Product used for unknown indication
     Dosage: 5 MCG, QD, CALLER TAKES 3/4 PILL DAILY
     Route: 048

REACTIONS (3)
  - Treatment noncompliance [Unknown]
  - Product complaint [Unknown]
  - Fatigue [Unknown]
